FAERS Safety Report 7941797-3 (Version None)
Quarter: 2011Q4

REPORT INFORMATION
  Report Type: 
  Country: None (occurrence: None)
  Receive Date: 20111128
  Receipt Date: 20111123
  Transmission Date: 20120403
  Serious: Yes (Other)
  Sender: FDA-Public Use
  Company Number: NO-PFIZER INC-2011286488

PATIENT
  Age: 48 Year
  Sex: Female

DRUGS (1)
  1. LYRICA [Suspect]
     Indication: NEURALGIA
     Dosage: 75 MG, UNK

REACTIONS (14)
  - DIPLOPIA [None]
  - SWELLING [None]
  - HYPOGLYCAEMIA [None]
  - HYPERHIDROSIS [None]
  - FEELING ABNORMAL [None]
  - FATIGUE [None]
  - HYPERSENSITIVITY [None]
  - PRURITUS [None]
  - ECZEMA [None]
  - DRY EYE [None]
  - BLOOD GLUCOSE FLUCTUATION [None]
  - RASH [None]
  - EYE PRURITUS [None]
  - FEELING COLD [None]
